FAERS Safety Report 8362363 (Version 2)
Quarter: 2015Q1

REPORT INFORMATION
  Report Type: Report from Study
  Country: US (occurrence: US)
  Receive Date: 20120130
  Receipt Date: 20150225
  Transmission Date: 20150721
  Serious: Yes (Death)
  Sender: FDA-Public Use
  Company Number: US-ROCHE-1034450

PATIENT
  Sex: Female

DRUGS (68)
  1. AVASTIN [Suspect]
     Active Substance: BEVACIZUMAB
     Route: 042
     Dates: start: 20080929, end: 20080929
  2. DECADRON [Concomitant]
     Active Substance: DEXAMETHASONE
     Dosage: IN 5% DEXTROSE IN WATER (D5W) 100.0 ML
     Route: 065
     Dates: start: 20080429, end: 20080429
  3. DECADRON [Concomitant]
     Active Substance: DEXAMETHASONE
     Dosage: IN 5% DEXTROSE IN WATER (D5W) 100.0 ML
     Route: 065
     Dates: start: 20080617, end: 20080617
  4. IRINOTECAN HYDROCHLORIDE. [Concomitant]
     Active Substance: IRINOTECAN HYDROCHLORIDE
     Route: 042
     Dates: start: 20080415, end: 20080415
  5. IRINOTECAN HYDROCHLORIDE. [Concomitant]
     Active Substance: IRINOTECAN HYDROCHLORIDE
     Route: 042
     Dates: start: 20080603, end: 20080603
  6. ALOXI [Concomitant]
     Active Substance: PALONOSETRON HYDROCHLORIDE
     Dosage: OVER  31 MINUTES FOR 1 DAY IN NORMAL SALINE 50 ML
     Route: 042
     Dates: start: 20080429, end: 20080429
  7. ALOXI [Concomitant]
     Active Substance: PALONOSETRON HYDROCHLORIDE
     Dosage: OVER 31 MINUTES FOR 1 DAY IN NORMAL SALINE 50 ML
     Route: 042
     Dates: start: 20080811, end: 20080811
  8. SODIUM CHLORIDE I.V. [Concomitant]
     Route: 042
     Dates: start: 20080401, end: 20080401
  9. AVASTIN [Suspect]
     Active Substance: BEVACIZUMAB
     Route: 042
     Dates: start: 20080401, end: 20080401
  10. KYTRIL [Concomitant]
     Active Substance: GRANISETRON HYDROCHLORIDE
     Route: 048
     Dates: start: 20080318
  11. IRINOTECAN HYDROCHLORIDE. [Concomitant]
     Active Substance: IRINOTECAN HYDROCHLORIDE
     Route: 042
     Dates: start: 20080715, end: 20080715
  12. ANZEMET [Concomitant]
     Active Substance: DOLASETRON MESYLATE
     Dosage: IN NORMAL SALINE 50 ML
     Route: 042
     Dates: start: 20080219, end: 20080219
  13. ANZEMET [Concomitant]
     Active Substance: DOLASETRON MESYLATE
     Dosage: IN NORMAL SALINE 50 ML
     Route: 042
     Dates: start: 20080304, end: 20080304
  14. ALOXI [Concomitant]
     Active Substance: PALONOSETRON HYDROCHLORIDE
     Dosage: 31 MINUTES FOR 1 DAY IN NORMAL SALINE 50 ML
     Route: 042
     Dates: start: 20080701, end: 20080701
  15. SODIUM CHLORIDE I.V. [Concomitant]
     Route: 042
     Dates: start: 20080318, end: 20080318
  16. SODIUM CHLORIDE I.V. [Concomitant]
     Route: 042
     Dates: start: 20081013, end: 20081013
  17. AVASTIN [Suspect]
     Active Substance: BEVACIZUMAB
     Route: 042
     Dates: start: 20080318, end: 20080318
  18. DECADRON [Concomitant]
     Active Substance: DEXAMETHASONE
     Dosage: IN 5% DEXTROSE IN WATER (D5W) 100.0 ML
     Route: 065
     Dates: start: 20080728, end: 20080728
  19. IRINOTECAN HYDROCHLORIDE. [Concomitant]
     Active Substance: IRINOTECAN HYDROCHLORIDE
     Route: 042
     Dates: start: 20080429, end: 20080429
  20. IRINOTECAN HYDROCHLORIDE. [Concomitant]
     Active Substance: IRINOTECAN HYDROCHLORIDE
     Route: 042
     Dates: start: 20080701, end: 20080701
  21. ALOXI [Concomitant]
     Active Substance: PALONOSETRON HYDROCHLORIDE
     Dosage: OVER  31 MINUTES FOR 1 DAY IN NORMAL SALINE 50 ML
     Route: 042
     Dates: start: 20080415, end: 20080415
  22. AVASTIN [Suspect]
     Active Substance: BEVACIZUMAB
     Indication: BRAIN NEOPLASM MALIGNANT
     Route: 042
     Dates: start: 20080219, end: 20080219
  23. AVASTIN [Suspect]
     Active Substance: BEVACIZUMAB
     Route: 042
     Dates: start: 20080715, end: 20080715
  24. IRINOTECAN HYDROCHLORIDE. [Concomitant]
     Active Substance: IRINOTECAN HYDROCHLORIDE
     Route: 042
     Dates: start: 20080219, end: 20080219
  25. IRINOTECAN HYDROCHLORIDE. [Concomitant]
     Active Substance: IRINOTECAN HYDROCHLORIDE
     Route: 042
     Dates: start: 20080401, end: 20080401
  26. IRINOTECAN HYDROCHLORIDE. [Concomitant]
     Active Substance: IRINOTECAN HYDROCHLORIDE
     Route: 042
     Dates: start: 20080617, end: 20080617
  27. ANZEMET [Concomitant]
     Active Substance: DOLASETRON MESYLATE
     Dosage: IN NORMAL SALINE 50 ML
     Route: 042
     Dates: start: 20080318, end: 20080318
  28. ALOXI [Concomitant]
     Active Substance: PALONOSETRON HYDROCHLORIDE
     Dosage: 31 MINUTES FOR 1 DAY IN NORMAL SALINE 50 ML
     Route: 042
     Dates: start: 20080603, end: 20080603
  29. SODIUM CHLORIDE I.V. [Concomitant]
     Route: 042
     Dates: start: 20080304, end: 20080304
  30. SODIUM CHLORIDE I.V. [Concomitant]
     Route: 042
     Dates: start: 20080415, end: 20080415
  31. SODIUM CHLORIDE I.V. [Concomitant]
     Route: 042
     Dates: start: 20080429, end: 20080429
  32. SODIUM CHLORIDE I.V. [Concomitant]
     Route: 042
     Dates: start: 20080617, end: 20080617
  33. SODIUM CHLORIDE I.V. [Concomitant]
     Route: 042
     Dates: start: 20080701, end: 20080701
  34. AVASTIN [Suspect]
     Active Substance: BEVACIZUMAB
     Indication: TUBERCULOMA OF CENTRAL NERVOUS SYSTEM
     Route: 042
     Dates: start: 20080304, end: 20080304
  35. AVASTIN [Suspect]
     Active Substance: BEVACIZUMAB
     Route: 042
     Dates: start: 20080429, end: 20080429
  36. AVASTIN [Suspect]
     Active Substance: BEVACIZUMAB
     Route: 042
     Dates: start: 20080701, end: 20080701
  37. AVASTIN [Suspect]
     Active Substance: BEVACIZUMAB
     Route: 042
     Dates: start: 20080728, end: 20080728
  38. DECADRON [Concomitant]
     Active Substance: DEXAMETHASONE
     Dosage: IN 5% DEXTROSE IN WATER (D5W) 100.0 ML
     Route: 065
     Dates: start: 20080304, end: 20080304
  39. DECADRON [Concomitant]
     Active Substance: DEXAMETHASONE
     Dosage: IN 5% DEXTROSE IN WATER (D5W) 100.0 ML
     Route: 065
     Dates: start: 20080415, end: 20080415
  40. DECADRON [Concomitant]
     Active Substance: DEXAMETHASONE
     Dosage: IN 5% DEXTROSE IN WATER (D5W) 100.0 ML
     Route: 065
     Dates: start: 20080611, end: 20080611
  41. SODIUM CHLORIDE I.V. [Concomitant]
     Route: 042
     Dates: start: 20080728, end: 20080728
  42. COMPAZINE [Concomitant]
     Active Substance: PROCHLORPERAZINE MALEATE
     Route: 048
     Dates: start: 20080219
  43. AVASTIN [Suspect]
     Active Substance: BEVACIZUMAB
     Route: 042
     Dates: start: 20080415, end: 20080415
  44. DECADRON [Concomitant]
     Active Substance: DEXAMETHASONE
     Dosage: IN 5% DEXTROSE IN WATER (D5W) 100.0 ML
     Route: 065
     Dates: start: 20080401, end: 20080401
  45. IRINOTECAN HYDROCHLORIDE. [Concomitant]
     Active Substance: IRINOTECAN HYDROCHLORIDE
     Route: 042
     Dates: start: 20080318, end: 20080318
  46. IRINOTECAN HYDROCHLORIDE. [Concomitant]
     Active Substance: IRINOTECAN HYDROCHLORIDE
     Route: 042
     Dates: start: 20080811, end: 20080811
  47. ANZEMET [Concomitant]
     Active Substance: DOLASETRON MESYLATE
     Dosage: IN NORMAL SALINE 50 ML
     Route: 042
     Dates: start: 20080401, end: 20080401
  48. SODIUM CHLORIDE I.V. [Concomitant]
     Route: 042
     Dates: start: 20080219, end: 20080219
  49. SODIUM CHLORIDE I.V. [Concomitant]
     Route: 042
     Dates: start: 20080715, end: 20080715
  50. AVASTIN [Suspect]
     Active Substance: BEVACIZUMAB
     Route: 042
     Dates: start: 20080811, end: 20080811
  51. DECADRON [Concomitant]
     Active Substance: DEXAMETHASONE
     Dosage: IN 5% DEXTROSE IN WATER (D5W) 100.0 ML
     Route: 065
     Dates: start: 20080219, end: 20080219
  52. DECADRON [Concomitant]
     Active Substance: DEXAMETHASONE
     Dosage: IN 5% DEXTROSE IN WATER (D5W) 100.0 ML
     Route: 065
     Dates: start: 20080603, end: 20080603
  53. DECADRON [Concomitant]
     Active Substance: DEXAMETHASONE
     Dosage: IN 5% DEXTROSE IN WATER (D5W) 100.0 ML
     Route: 065
     Dates: start: 20080715, end: 20080715
  54. IRINOTECAN HYDROCHLORIDE. [Concomitant]
     Active Substance: IRINOTECAN HYDROCHLORIDE
     Route: 042
     Dates: start: 20080304, end: 20080304
  55. IRINOTECAN HYDROCHLORIDE. [Concomitant]
     Active Substance: IRINOTECAN HYDROCHLORIDE
     Route: 042
     Dates: start: 20080728, end: 20080728
  56. ALOXI [Concomitant]
     Active Substance: PALONOSETRON HYDROCHLORIDE
     Dosage: OVER  31 MINUTES FOR 1 DAY IN NORMAL SALINE 50 ML
     Route: 042
     Dates: start: 20080715, end: 20080715
  57. ALOXI [Concomitant]
     Active Substance: PALONOSETRON HYDROCHLORIDE
     Dosage: 31 MINUTES FOR 1 DAY IN NORMAL SALINE 50 ML
     Route: 042
     Dates: start: 20080728, end: 20080728
  58. SODIUM CHLORIDE I.V. [Concomitant]
     Route: 042
     Dates: start: 20080603, end: 20080603
  59. SODIUM CHLORIDE I.V. [Concomitant]
     Route: 042
     Dates: start: 20080811, end: 20080811
  60. AVASTIN [Suspect]
     Active Substance: BEVACIZUMAB
     Route: 042
     Dates: start: 20080603, end: 20080603
  61. AVASTIN [Suspect]
     Active Substance: BEVACIZUMAB
     Route: 042
     Dates: start: 20080617, end: 20080617
  62. AVASTIN [Suspect]
     Active Substance: BEVACIZUMAB
     Route: 042
     Dates: start: 20081013, end: 20081013
  63. DECADRON [Concomitant]
     Active Substance: DEXAMETHASONE
     Dosage: IN 5% DEXTROSE IN WATER (D5W) 100.0 ML
     Route: 065
     Dates: start: 20080318, end: 20080318
  64. DECADRON [Concomitant]
     Active Substance: DEXAMETHASONE
     Dosage: IN 5% DEXTROSE IN WATER (D5W) 100.0 ML
     Route: 065
     Dates: start: 20080701, end: 20080701
  65. DECADRON [Concomitant]
     Active Substance: DEXAMETHASONE
     Dosage: IN 5% DEXTROSE IN WATER (D5W) 100.0 ML
     Route: 065
     Dates: start: 20080811, end: 20080811
  66. ALOXI [Concomitant]
     Active Substance: PALONOSETRON HYDROCHLORIDE
     Dosage: OVER  31 MINUTES FOR 1 DAY IN NORMAL SALINE 50 ML
     Route: 042
     Dates: start: 20080617, end: 20080617
  67. ETOPOSIDE. [Concomitant]
     Active Substance: ETOPOSIDE
     Route: 048
     Dates: start: 20080929
  68. ACETAMINOPHEN. [Concomitant]
     Active Substance: ACETAMINOPHEN
     Route: 048
     Dates: start: 20080219

REACTIONS (2)
  - Off label use [Unknown]
  - Death [Fatal]
